FAERS Safety Report 9882631 (Version 2)
Quarter: 2014Q1

REPORT INFORMATION
  Report Type: Spontaneous
  Country: US (occurrence: US)
  Receive Date: 20140207
  Receipt Date: 20140207
  Transmission Date: 20141002
  Serious: No
  Sender: FDA-Public Use
  Company Number: US-PURDUE-USA-2011-0076815

PATIENT
  Age: 66 Year
  Sex: Female

DRUGS (1)
  1. OXYCODONE HCL IMMEDIATE RELEASE (91-490) [Suspect]
     Indication: BACK PAIN
     Dosage: 30 MG, BID

REACTIONS (2)
  - Pain [Unknown]
  - Drug effect decreased [Unknown]
